FAERS Safety Report 20457529 (Version 2)
Quarter: 2022Q4

REPORT INFORMATION
  Report Type: Spontaneous
  Country: US (occurrence: US)
  Receive Date: 20220210
  Receipt Date: 20221103
  Transmission Date: 20230113
  Serious: Yes (Other)
  Sender: FDA-Public Use
  Company Number: US-GILEAD-2022-0569525

PATIENT
  Sex: Male
  Weight: 79.365 kg

DRUGS (32)
  1. VIREAD [Suspect]
     Active Substance: TENOFOVIR DISOPROXIL FUMARATE
     Indication: HIV infection
     Dosage: UNK
     Route: 048
     Dates: start: 2004
  2. ATRIPLA [Suspect]
     Active Substance: EFAVIRENZ\EMTRICITABINE\TENOFOVIR DISOPROXIL FUMARATE
     Indication: HIV infection
     Dosage: UNK
     Route: 048
     Dates: start: 2004
  3. TRUVADA [Suspect]
     Active Substance: EMTRICITABINE\TENOFOVIR DISOPROXIL FUMARATE
     Indication: HIV infection
     Dosage: UNK
     Route: 048
     Dates: start: 2004
  4. TRUVADA [Suspect]
     Active Substance: EMTRICITABINE\TENOFOVIR DISOPROXIL FUMARATE
     Dosage: UNK
     Route: 048
     Dates: end: 201107
  5. EMTRIVA [Concomitant]
     Active Substance: EMTRICITABINE
  6. ISENTRESS [Concomitant]
     Active Substance: RALTEGRAVIR POTASSIUM
  7. SUSTIVA [Concomitant]
     Active Substance: EFAVIRENZ
  8. ZERIT [Concomitant]
     Active Substance: STAVUDINE
  9. ZIAGEN [Concomitant]
     Active Substance: ABACAVIR SULFATE
  10. FLUTICASONE [Concomitant]
     Active Substance: FLUTICASONE
  11. ROXICET [Concomitant]
     Active Substance: ACETAMINOPHEN\OXYCODONE HYDROCHLORIDE
  12. AMMONIUM LACTATE [Concomitant]
     Active Substance: AMMONIUM LACTATE
  13. ZOCOR [Concomitant]
     Active Substance: SIMVASTATIN
  14. ISONIAZID [Concomitant]
     Active Substance: ISONIAZID
  15. VITAMIN B6 [Concomitant]
     Active Substance: PYRIDOXINE HYDROCHLORIDE
  16. OXYCODONE [Concomitant]
     Active Substance: OXYCODONE
  17. ENDOCET [Concomitant]
     Active Substance: ACETAMINOPHEN\OXYCODONE HYDROCHLORIDE
  18. CODEINE [Concomitant]
     Active Substance: CODEINE
  19. AZITHROMYCIN [Concomitant]
     Active Substance: AZITHROMYCIN
  20. MUPIROCIN [Concomitant]
     Active Substance: MUPIROCIN
  21. DIAZEPAM [Concomitant]
     Active Substance: DIAZEPAM
  22. AMMONIUM LACTATE [Concomitant]
     Active Substance: AMMONIUM LACTATE
  23. CLARITHROMYCIN [Concomitant]
     Active Substance: CLARITHROMYCIN
  24. CEPHALEXIN [Concomitant]
     Active Substance: CEPHALEXIN
  25. ROSUVASTATIN [Concomitant]
     Active Substance: ROSUVASTATIN
  26. SONATA ADAMED [Concomitant]
  27. SILDENAFIL [Concomitant]
     Active Substance: SILDENAFIL
  28. TRAZODONE [Concomitant]
     Active Substance: TRAZODONE HYDROCHLORIDE
  29. TRETINOIN [Concomitant]
     Active Substance: TRETINOIN
  30. MELATONIN [Concomitant]
     Active Substance: MELATONIN
  31. NASONEX [Concomitant]
     Active Substance: MOMETASONE FUROATE
  32. FLONASE [Concomitant]
     Active Substance: FLUTICASONE PROPIONATE

REACTIONS (16)
  - Chronic kidney disease [Not Recovered/Not Resolved]
  - Osteoporosis [Not Recovered/Not Resolved]
  - Spinal fracture [Recovered/Resolved]
  - Chronic kidney disease [Not Recovered/Not Resolved]
  - Chronic kidney disease-mineral and bone disorder [Not Recovered/Not Resolved]
  - Renal injury [Unknown]
  - Hip fracture [Recovered/Resolved]
  - Pain [Not Recovered/Not Resolved]
  - Emotional distress [Not Recovered/Not Resolved]
  - Anxiety [Not Recovered/Not Resolved]
  - Anhedonia [Not Recovered/Not Resolved]
  - Hypertension [Not Recovered/Not Resolved]
  - Metabolic acidosis [Recovered/Resolved]
  - Anaemia [Not Recovered/Not Resolved]
  - Hyperparathyroidism [Not Recovered/Not Resolved]
  - Gait disturbance [Not Recovered/Not Resolved]

NARRATIVE: CASE EVENT DATE: 20080101
